FAERS Safety Report 20670991 (Version 2)
Quarter: 2022Q2

REPORT INFORMATION
  Report Type: Spontaneous
  Country: JP (occurrence: JP)
  Receive Date: 20220404
  Receipt Date: 20220413
  Transmission Date: 20220721
  Serious: No
  Sender: FDA-Public Use
  Company Number: JP-PFIZER INC-202200463471

PATIENT

DRUGS (1)
  1. PAXLOVID [Suspect]
     Active Substance: NIRMATRELVIR\RITONAVIR
     Indication: COVID-19 treatment
     Dosage: PF-07321332 300MG
     Route: 048

REACTIONS (5)
  - Vomiting [Unknown]
  - Off label use [Unknown]
  - Product prescribing error [Unknown]
  - Product use complaint [Unknown]
  - Product size issue [Unknown]
